FAERS Safety Report 19579311 (Version 1)
Quarter: 2021Q3

REPORT INFORMATION
  Report Type: Spontaneous
  Country: US (occurrence: US)
  Receive Date: 20210719
  Receipt Date: 20210719
  Transmission Date: 20211014
  Serious: No
  Sender: FDA-Public Use
  Company Number: US-NOVOPROD-774034

PATIENT
  Age: 79 Year
  Sex: Male

DRUGS (1)
  1. OZEMPIC [Suspect]
     Active Substance: SEMAGLUTIDE
     Indication: PRODUCT USED FOR UNKNOWN INDICATION
     Dosage: UNK
     Route: 058
     Dates: start: 202011, end: 202012

REACTIONS (3)
  - Myalgia [Unknown]
  - Muscle fatigue [Unknown]
  - Sciatica [Unknown]

NARRATIVE: CASE EVENT DATE: 2020
